FAERS Safety Report 6203034-X (Version None)
Quarter: 2009Q2

REPORT INFORMATION
  Report Type: 
  Country: None (occurrence: None)
  Receive Date: 20090521
  Receipt Date: 20090521
  Transmission Date: 20091009
  Serious: Yes (Hospitalization)
  Sender: FDA-Public Use
  Company Number: None

PATIENT
  Age: 42 Year
  Sex: Female
  Weight: 106 kg

DRUGS (11)
  1. DASATINIB 100 MG BMS [Suspect]
     Indication: BREAST CANCER METASTATIC
     Dosage: 100 MG BID PO
     Route: 048
     Dates: start: 20090309, end: 20090519
  2. SERTRALINE HCL [Concomitant]
  3. LORAZEPAM [Concomitant]
  4. NAPROXEN [Concomitant]
  5. HYDROCODONE BITARTRATE [Concomitant]
  6. POTASSIUM CHLORIDE [Concomitant]
  7. ZOFRAN [Concomitant]
  8. AMBIEN [Concomitant]
  9. LORATADINE [Concomitant]
  10. C-PHEN DM SYRUP [Concomitant]
  11. OXYCONTIN [Concomitant]

REACTIONS (1)
  - ABSCESS NECK [None]
